FAERS Safety Report 8388711-7 (Version None)
Quarter: 2012Q2

REPORT INFORMATION
  Report Type: 
  Country: None (occurrence: None)
  Receive Date: 20120527
  Receipt Date: 20120515
  Transmission Date: 20120825
  Serious: Yes (Other)
  Sender: FDA-Public Use
  Company Number: US-BAYER-2012-048965

PATIENT
  Age: 80 Year
  Sex: Female
  Weight: 63 kg

DRUGS (8)
  1. MULTI-VITAMIN [Concomitant]
  2. BEIRIVA [Concomitant]
  3. CLONAZEPAM [Concomitant]
  4. NAPROXEN SODIUM [Suspect]
     Indication: ARTHRITIS
     Dosage: 2 U, QD
     Route: 048
     Dates: start: 19970101
  5. SIMVASTATIN [Concomitant]
  6. VITAMIN D [Concomitant]
  7. CHOLESTYRAMINE [Concomitant]
  8. LEVOTHYROXINE SODIUM [Concomitant]

REACTIONS (1)
  - HAEMORRHAGE [None]
